FAERS Safety Report 8115389-X (Version None)
Quarter: 2012Q1

REPORT INFORMATION
  Report Type: 
  Country: None (occurrence: None)
  Receive Date: 20120206
  Receipt Date: 20120206
  Transmission Date: 20120608
  Serious: Yes (Other)
  Sender: FDA-Public Use
  Company Number: None

PATIENT
  Age: 24 Year
  Sex: Male
  Weight: 75 kg

DRUGS (1)
  1. PROPECIA [Suspect]
     Indication: ANDROGENETIC ALOPECIA
     Dosage: 1.0 MG
     Route: 048
     Dates: start: 20101201, end: 20110124

REACTIONS (14)
  - SEXUAL DYSFUNCTION [None]
  - DRY SKIN [None]
  - SWELLING [None]
  - BRADYPHRENIA [None]
  - HAIR GROWTH ABNORMAL [None]
  - AMNESIA [None]
  - ERECTILE DYSFUNCTION [None]
  - POLLAKIURIA [None]
  - DISTURBANCE IN ATTENTION [None]
  - TESTICULAR ATROPHY [None]
  - INSOMNIA [None]
  - EYES SUNKEN [None]
  - DECREASED APPETITE [None]
  - PROSTATIC DISORDER [None]
